FAERS Safety Report 7183080-2 (Version None)
Quarter: 2010Q4

REPORT INFORMATION
  Report Type: 
  Country: None (occurrence: None)
  Receive Date: 20101222
  Receipt Date: 20100803
  Transmission Date: 20110411
  Serious: No
  Sender: FDA-Public Use
  Company Number: A0875077A

PATIENT
  Sex: Male

DRUGS (1)
  1. RYTHMOL [Suspect]

REACTIONS (2)
  - CONSTIPATION [None]
  - HEART RATE INCREASED [None]
